FAERS Safety Report 18763016 (Version 1)
Quarter: 2021Q1

REPORT INFORMATION
  Report Type: Spontaneous
  Country: DE (occurrence: DE)
  Receive Date: 20210120
  Receipt Date: 20210120
  Transmission Date: 20210419
  Serious: Yes (Hospitalization)
  Sender: FDA-Public Use
  Company Number: DE-MYLANLABS-2021M1003443

PATIENT
  Age: 6 Month
  Sex: Male

DRUGS (1)
  1. METFORMIN [Suspect]
     Active Substance: METFORMIN HYDROCHLORIDE
     Indication: DONOHUE SYNDROME
     Dosage: 25 MILLIGRAM/KILOGRAM, QD
     Route: 065

REACTIONS (2)
  - Hepatic failure [Recovering/Resolving]
  - Off label use [Unknown]
